FAERS Safety Report 16064975 (Version 1)
Quarter: 2019Q1

REPORT INFORMATION
  Report Type: Spontaneous
  Country: FR (occurrence: FR)
  Receive Date: 20190313
  Receipt Date: 20190313
  Transmission Date: 20190418
  Serious: Yes (Other)
  Sender: FDA-Public Use
  Company Number: PHHY2019FR054626

PATIENT
  Age: 65 Year
  Sex: Male

DRUGS (2)
  1. CERTICAN [Suspect]
     Active Substance: EVEROLIMUS
     Indication: LIVER TRANSPLANT
     Dosage: 2 DF, QD
     Route: 048
     Dates: start: 2000
  2. NEORAL [Suspect]
     Active Substance: CYCLOSPORINE
     Indication: LIVER TRANSPLANT
     Dosage: 2 DF, QD
     Route: 048
     Dates: start: 2000

REACTIONS (2)
  - Labelled drug-drug interaction medication error [Unknown]
  - Neoplasm malignant [Unknown]
